FAERS Safety Report 8914419 (Version 1)
Quarter: 2012Q4

REPORT INFORMATION
  Report Type: 
  Country: US (occurrence: US)
  Receive Date: 20121116
  Receipt Date: 20121116
  Transmission Date: 20130627
  Serious: No
  Sender: FDA-Public Use
  Company Number: US-TEVA-368842USA

PATIENT
  Sex: Female

DRUGS (3)
  1. QVAR [Suspect]
     Indication: ASTHMA
     Route: 055
     Dates: start: 2012, end: 2012
  2. QVAR [Suspect]
     Indication: SEASONAL ALLERGY
  3. CETIRIZINE [Concomitant]
     Indication: SEASONAL ALLERGY
     Route: 048

REACTIONS (1)
  - Vision blurred [Unknown]
